FAERS Safety Report 4908575-0 (Version None)
Quarter: 2006Q1

REPORT INFORMATION
  Report Type: 
  Country: None (occurrence: None)
  Receive Date: 20060210
  Receipt Date: 20050901
  Transmission Date: 20060701
  Serious: No
  Sender: FDA-Public Use
  Company Number: US-GLAXOSMITHKLINE-A0572741A

PATIENT
  Age: 24 Year
  Sex: Female

DRUGS (2)
  1. PAXIL CR [Suspect]
     Indication: PANIC DISORDER
     Dosage: 37.5MG PER DAY
     Route: 048
  2. BUSPAR [Concomitant]

REACTIONS (4)
  - DRUG INEFFECTIVE [None]
  - ELECTRIC SHOCK [None]
  - HEADACHE [None]
  - HYPERHIDROSIS [None]
